FAERS Safety Report 4818856-7 (Version None)
Quarter: 2005Q4

REPORT INFORMATION
  Report Type: 
  Country: None (occurrence: None)
  Receive Date: 20051101
  Receipt Date: 20051021
  Transmission Date: 20060501
  Serious: Yes (Hospitalization, Other)
  Sender: FDA-Public Use
  Company Number: KII-2005-0019284

PATIENT
  Age: 74 Year
  Sex: Male

DRUGS (3)
  1. MORPHINE [Suspect]
  2. ACETAMINOPHEN AND OXYCODONE HCL [Suspect]
     Dosage: ORAL
     Route: 048
  3. METOPROLOL TARTRATE [Suspect]

REACTIONS (13)
  - ALANINE AMINOTRANSFERASE INCREASED [None]
  - APHASIA [None]
  - ASPARTATE AMINOTRANSFERASE INCREASED [None]
  - BLOOD BILIRUBIN INCREASED [None]
  - COAGULATION TIME PROLONGED [None]
  - DRUG ADMINISTRATION ERROR [None]
  - DYSARTHRIA [None]
  - FAECAL INCONTINENCE [None]
  - FALL [None]
  - HAEMORRHAGE INTRACRANIAL [None]
  - INCORRECT DOSE ADMINISTERED [None]
  - LETHARGY [None]
  - PROTHROMBIN TIME PROLONGED [None]
